FAERS Safety Report 4767081-7 (Version None)
Quarter: 2005Q3

REPORT INFORMATION
  Report Type: 
  Country: None (occurrence: None)
  Receive Date: 20050908
  Receipt Date: 20050825
  Transmission Date: 20060218
  Serious: Yes (Hospitalization)
  Sender: FDA-Public Use
  Company Number: 2005P1000253

PATIENT
  Age: 67 Year
  Sex: Female

DRUGS (8)
  1. RETEVASE [Suspect]
     Indication: ACUTE MYOCARDIAL INFARCTION
     Dosage: IV
     Route: 042
     Dates: start: 20050506
  2. ABCIXIMAB (ABCIXIMAB) [Suspect]
     Indication: ACUTE MYOCARDIAL INFARCTION
     Dosage: IV
     Route: 042
     Dates: start: 20050506
  3. ASPIRIN [Concomitant]
  4. METOPROLOL [Concomitant]
  5. CLOPIDOGREL [Concomitant]
  6. FLUVASTATIN [Concomitant]
  7. RAMIPRIL [Concomitant]
  8. FUROSEMIDE [Concomitant]

REACTIONS (1)
  - CORONARY ARTERY STENOSIS [None]
